FAERS Safety Report 7157454-X (Version None)
Quarter: 2010Q4

REPORT INFORMATION
  Report Type: 
  Country: None (occurrence: None)
  Receive Date: 20101214
  Receipt Date: 20101206
  Transmission Date: 20110411
  Serious: Yes (Other)
  Sender: FDA-Public Use
  Company Number: B0667182A

PATIENT
  Age: 3 Year
  Sex: Female

DRUGS (2)
  1. ZINNAT [Suspect]
     Route: 065
     Dates: start: 20100401, end: 20100401
  2. CEFTRIAXON [Concomitant]
     Route: 065

REACTIONS (1)
  - PNEUMONIA [None]
